FAERS Safety Report 7949347-2 (Version None)
Quarter: 2011Q4

REPORT INFORMATION
  Report Type: 
  Country: None (occurrence: None)
  Receive Date: 20111125
  Receipt Date: 20111114
  Transmission Date: 20120403
  Serious: Yes (Hospitalization)
  Sender: FDA-Public Use
  Company Number: 2011SP003852

PATIENT
  Age: 61 Year
  Sex: Female
  Weight: 125.7 kg

DRUGS (3)
  1. ACETYLSALICYLIC ACID SRT [Concomitant]
  2. FISH OIL [Concomitant]
  3. LUNESTA [Suspect]
     Dosage: ;PRN;ORAL
     Dates: start: 20100101, end: 20111101

REACTIONS (6)
  - ABDOMINAL PAIN [None]
  - TRANSIENT ISCHAEMIC ATTACK [None]
  - BURNING SENSATION [None]
  - ANXIETY [None]
  - PAIN [None]
  - CONDITION AGGRAVATED [None]
